FAERS Safety Report 24834677 (Version 1)
Quarter: 2025Q1

REPORT INFORMATION
  Report Type: Spontaneous
  Country: US (occurrence: None)
  Receive Date: 20250110
  Receipt Date: 20250110
  Transmission Date: 20250409
  Serious: No
  Sender: FDA-CTU
  Company Number: None

PATIENT
  Sex: Male

DRUGS (4)
  1. TALTZ [Suspect]
     Active Substance: IXEKIZUMAB
     Indication: Psoriatic arthropathy
     Dosage: FREQUENCY : MONTHLY;?
     Route: 058
     Dates: start: 202410
  2. TALTZ [Suspect]
     Active Substance: IXEKIZUMAB
     Indication: Psoriasis
  3. TALTZ [Concomitant]
     Active Substance: IXEKIZUMAB
  4. CIMZIA 200MG PF SYR (2/BOX) [Concomitant]

REACTIONS (8)
  - Rash [None]
  - Fungal infection [None]
  - Rash [None]
  - Abdominal pain [None]
  - Dyspepsia [None]
  - Gastrointestinal pain [None]
  - Abdominal discomfort [None]
  - Frequent bowel movements [None]
